FAERS Safety Report 10018204 (Version 2)
Quarter: 2014Q1

REPORT INFORMATION
  Report Type: Spontaneous
  Country: US (occurrence: US)
  Receive Date: 20140318
  Receipt Date: 20140318
  Transmission Date: 20141002
  Serious: Yes (Other)
  Sender: FDA-Public Use
  Company Number: US-BRISTOL-MYERS SQUIBB COMPANY-19223551

PATIENT
  Age: 57 Year
  Sex: Male

DRUGS (16)
  1. ERBITUX SOLN FOR INF [Suspect]
     Indication: LUNG NEOPLASM MALIGNANT
     Route: 042
     Dates: start: 20130821, end: 20130821
  2. ASPIRIN [Concomitant]
     Dates: start: 20130805
  3. INSULIN [Concomitant]
     Dosage: 1DF:100 UNITS
  4. IBUPROFEN [Concomitant]
     Dates: start: 20130805
  5. TRAZODONE HCL [Concomitant]
     Dates: start: 20130821
  6. COMPAZINE [Concomitant]
     Indication: NAUSEA
     Dates: start: 20130805
  7. COMPAZINE [Concomitant]
     Indication: VOMITING
     Dates: start: 20130805
  8. LANTUS [Concomitant]
     Dosage: 1DF:10 UNITS
     Dates: start: 20130805
  9. CHANTIX [Concomitant]
  10. ACCUPRIL [Concomitant]
     Dates: start: 20130805
  11. PROZAC [Concomitant]
     Dates: start: 20130805
  12. GLUCOPHAGE [Concomitant]
     Dates: start: 20130805
  13. GLUCOTROL [Concomitant]
     Dates: start: 20130805
  14. LIPITOR [Concomitant]
  15. TOPROL [Concomitant]
     Dates: start: 20130805
  16. PROVENTIL [Concomitant]

REACTIONS (2)
  - Drug hypersensitivity [Recovered/Resolved]
  - Off label use [Unknown]
